FAERS Safety Report 25123113 (Version 1)
Quarter: 2025Q1

REPORT INFORMATION
  Report Type: Spontaneous
  Country: US (occurrence: US)
  Receive Date: 20250326
  Receipt Date: 20250326
  Transmission Date: 20250408
  Serious: No
  Sender: GRIFOLS
  Company Number: US-IGSA-LE20008184

PATIENT
  Sex: Female
  Weight: 57.7 kg

DRUGS (2)
  1. PROLASTIN-C LIQUID [Suspect]
     Active Substance: .ALPHA.1-PROTEINASE INHIBITOR HUMAN
     Indication: Alpha-1 antitrypsin deficiency
     Dates: start: 20191212
  2. PROLASTIN-C LIQUID [Suspect]
     Active Substance: .ALPHA.1-PROTEINASE INHIBITOR HUMAN
     Dates: start: 20190114

REACTIONS (1)
  - Drug ineffective [Not Recovered/Not Resolved]

NARRATIVE: CASE EVENT DATE: 20190101
